FAERS Safety Report 4618537-9 (Version None)
Quarter: 2005Q1

REPORT INFORMATION
  Report Type: 
  Country: None (occurrence: None)
  Receive Date: 20050323
  Receipt Date: 20050315
  Transmission Date: 20050727
  Serious: Yes (Other)
  Sender: FDA-Public Use
  Company Number: 2004088276

PATIENT
  Age: 60 Year
  Sex: 0
  Weight: 72 kg

DRUGS (5)
  1. AMLODIPINE [Suspect]
     Indication: HYPERTENSION
     Dosage: 5 MG (5 MG, 1 IN 1 D), ORAL
     Route: 048
     Dates: start: 20041027, end: 20041031
  2. BENDROFLUMETHIAZIDE                (BENDROFLUMETHIAZIDE) [Concomitant]
  3. FLECAINIDE ACETATE [Concomitant]
  4. TERBUTALINE SULFATE [Concomitant]
  5. FELODIPINE [Concomitant]

REACTIONS (10)
  - AGNOSIA [None]
  - BLOOD PRESSURE INCREASED [None]
  - CEREBROVASCULAR DISORDER [None]
  - ELECTROENCEPHALOGRAM ABNORMAL [None]
  - EPILEPSY [None]
  - FEELING ABNORMAL [None]
  - MEMORY IMPAIRMENT [None]
  - MIGRAINE [None]
  - TRANSIENT ISCHAEMIC ATTACK [None]
  - VISION BLURRED [None]
